FAERS Safety Report 23975862 (Version 1)
Quarter: 2024Q2

REPORT INFORMATION
  Report Type: Spontaneous
  Country: US (occurrence: US)
  Receive Date: 20240614
  Receipt Date: 20240614
  Transmission Date: 20240716
  Serious: Yes (Hospitalization, Other)
  Sender: FDA-Public Use
  Company Number: US-Accord-429255

PATIENT
  Age: 41 Year
  Sex: Male

DRUGS (6)
  1. LURASIDONE [Suspect]
     Active Substance: LURASIDONE
     Indication: Mood swings
     Dosage: 80 MG PO IN THE MORNING AND 40 MG PO IN THE EVENING.
     Route: 048
  2. BUPROPION HYDROCHLORIDE [Concomitant]
     Active Substance: BUPROPION HYDROCHLORIDE
     Indication: Depression
     Route: 048
  3. LITHIUM CARBONATE [Concomitant]
     Active Substance: LITHIUM CARBONATE
     Indication: Bipolar disorder
     Dosage: TWICE A DAY
     Route: 048
  4. GABAPENTIN [Concomitant]
     Active Substance: GABAPENTIN
     Indication: Bipolar disorder
     Dosage: TWICE A DAY
     Route: 048
  5. LAMOTRIGINE [Concomitant]
     Active Substance: LAMOTRIGINE
     Dosage: BEDTIME
     Route: 048
  6. LURASIDONE [Suspect]
     Active Substance: LURASIDONE
     Indication: Mood swings
     Dosage: 80 MG PO IN THE MORNING AND 40 MG PO IN THE EVENING.

REACTIONS (1)
  - Electrocardiogram QT prolonged [Unknown]
